FAERS Safety Report 5330985-0 (Version None)
Quarter: 2007Q2

REPORT INFORMATION
  Report Type: 
  Country: None (occurrence: None)
  Receive Date: 20070522
  Receipt Date: 20070511
  Transmission Date: 20071010
  Serious: Yes (Life-Threatening, Hospitalization)
  Sender: FDA-Public Use
  Company Number: GB-ROCHE-497671

PATIENT
  Age: 59 Year
  Sex: Male

DRUGS (4)
  1. XENICAL [Suspect]
     Indication: OBESITY
     Route: 048
     Dates: start: 20060314, end: 20070223
  2. ATORVASTATIN CALCIUM [Concomitant]
     Route: 048
     Dates: start: 20040630
  3. CITALOPRAM HYDROBROMIDE [Concomitant]
     Indication: DEPRESSION
     Route: 048
     Dates: start: 20060707
  4. POLYTAR [Concomitant]
     Dosage: PRN

REACTIONS (1)
  - GASTROINTESTINAL CARCINOMA [None]
